FAERS Safety Report 7604566-X (Version None)
Quarter: 2011Q3

REPORT INFORMATION
  Report Type: 
  Country: None (occurrence: None)
  Receive Date: 20110712
  Receipt Date: 20110628
  Transmission Date: 20111222
  Serious: Yes (Other)
  Sender: FDA-Public Use
  Company Number: AR-AMGEN-ARGSP2011024304

PATIENT
  Age: 55 Year
  Sex: Female

DRUGS (11)
  1. METHOTREXATE [Concomitant]
     Dosage: 10 MG, WEEKLY
     Route: 048
     Dates: end: 20100318
  2. ENBREL [Suspect]
     Indication: RHEUMATOID ARTHRITIS
     Dosage: 25 MG, 2X/WEEK
     Route: 058
     Dates: start: 20070528, end: 20100316
  3. FOLIC ACID [Concomitant]
     Dosage: 5 MG, WEEKLY
  4. LANZOPRAL [Concomitant]
     Dosage: UNK
  5. FLUOXETINE [Concomitant]
     Dosage: UNK
  6. ANIMEX-ON [Concomitant]
     Dosage: UNK
  7. ARAVA [Concomitant]
     Dosage: 20 MG, UNK
  8. NAPRUX [Concomitant]
     Dosage: UNK
  9. AZACORTID [Concomitant]
     Dosage: 6 MG, 1X/DAY
  10. EPAMIN                             /00017401/ [Concomitant]
     Dosage: UNK
  11. ENALAPRIL MALEATE [Concomitant]
     Dosage: 5 MG, 1X/DAY

REACTIONS (6)
  - SUBCUTANEOUS NODULE [None]
  - DEPRESSION [None]
  - WEIGHT DECREASED [None]
  - MENINGIOMA [None]
  - RHEUMATOID ARTHRITIS [None]
  - ANXIETY [None]
